FAERS Safety Report 7904810-5 (Version None)
Quarter: 2011Q4

REPORT INFORMATION
  Report Type: 
  Country: None (occurrence: None)
  Receive Date: 20111109
  Receipt Date: 20111026
  Transmission Date: 20120403
  Serious: Yes (Hospitalization)
  Sender: FDA-Public Use
  Company Number: PHHO2011FR16887

PATIENT
  Sex: Male
  Weight: 88 kg

DRUGS (15)
  1. BACTRIM [Concomitant]
     Dosage: 1 TABLET IN THE EVENING
  2. POLYETHYLENE GLYCOL [Concomitant]
     Dosage: 2 SACHETS, TWICE A DAY ON DEMAND
  3. LEDERFOLIN [Concomitant]
     Dosage: 1 TABLET IN THE EVENING
  4. NEORAL [Suspect]
     Indication: RENAL TRANSPLANT
     Dosage: 400 MG, UNK
     Route: 048
     Dates: start: 20110907
  5. ECONAZOLE NITRATE [Concomitant]
  6. ARANESP [Concomitant]
  7. XATRAL                                  /FRA/ [Concomitant]
     Dosage: 1 TABLET IN THE MORNING
  8. OFLOXACIN [Concomitant]
     Dosage: 1 TABLET PER DAY
     Dates: end: 20111015
  9. BISOPROLOL FUMARATE [Concomitant]
     Dosage: 1 TABLET IN THE MORNING
  10. MYCOPHENOLATE MOFETIL (CELLCEPT) [Suspect]
     Indication: RENAL TRANSPLANT
     Dosage: 3 G, UNK
     Route: 048
     Dates: start: 20110905
  11. PREDNISONE [Suspect]
     Indication: RENAL TRANSPLANT
     Dosage: 17.5
     Route: 048
     Dates: start: 20110906
  12. AMLODIPINE BESYLATE [Concomitant]
     Dosage: 1 TABLET IN THE MORNING
  13. ZANTAC [Concomitant]
     Dosage: 150 MG, IN THE EVENING
  14. VALGANCICLOVIR [Concomitant]
     Dosage: 1 TABLET EVERY OTHER DAY
  15. ACETAMINOPHEN [Concomitant]
     Indication: PAIN
     Dosage: ON DEMAND

REACTIONS (3)
  - RENAL IMPAIRMENT [None]
  - ARTERIOVENOUS FISTULA [None]
  - ANAEMIA [None]
